FAERS Safety Report 16979025 (Version 1)
Quarter: 2019Q4

REPORT INFORMATION
  Report Type: Spontaneous
  Country: CA (occurrence: CA)
  Receive Date: 20191031
  Receipt Date: 20191031
  Transmission Date: 20200122
  Serious: Yes (Other)
  Sender: FDA-Public Use
  Company Number: CA-PFIZER INC-2019465185

PATIENT
  Age: 46 Year
  Sex: Female
  Weight: 60 kg

DRUGS (11)
  1. ACETAMINOPHEN. [Concomitant]
     Active Substance: ACETAMINOPHEN
     Dosage: UNK
  2. PREDNISONE. [Concomitant]
     Active Substance: PREDNISONE
     Dosage: UNK
  3. CETIRIZINE [Concomitant]
     Active Substance: CETIRIZINE HYDROCHLORIDE
     Dosage: UNK
  4. PLAQUENIL [Concomitant]
     Active Substance: HYDROXYCHLOROQUINE SULFATE
     Dosage: UNK
  5. BENLYSTA [Suspect]
     Active Substance: BELIMUMAB
     Dosage: UNK [1 EVERY 4 WEEK(S)]
     Route: 042
  6. BENLYSTA [Suspect]
     Active Substance: BELIMUMAB
     Dosage: UNK [1 EVERY 2 WEEK(S)]
     Route: 042
  7. BENLYSTA [Suspect]
     Active Substance: BELIMUMAB
     Dosage: UNK
     Route: 065
  8. BENLYSTA [Suspect]
     Active Substance: BELIMUMAB
     Indication: SYSTEMIC LUPUS ERYTHEMATOSUS
     Dosage: 600 MG, CYCLIC
     Route: 042
  9. BENLYSTA [Suspect]
     Active Substance: BELIMUMAB
     Dosage: UNK
     Route: 042
  10. CHAMPIX [Suspect]
     Active Substance: VARENICLINE TARTRATE
     Indication: EX-TOBACCO USER
     Dosage: UNK
     Route: 065
  11. REACTINE [CETIRIZINE HYDROCHLORIDE] [Concomitant]
     Active Substance: CETIRIZINE HYDROCHLORIDE
     Dosage: UNK

REACTIONS (12)
  - Asthenia [Recovering/Resolving]
  - Malaise [Recovering/Resolving]
  - Procedural complication [Recovering/Resolving]
  - Somnolence [Recovering/Resolving]
  - Alopecia [Recovering/Resolving]
  - Condition aggravated [Recovering/Resolving]
  - Exfoliative rash [Recovering/Resolving]
  - Fatigue [Recovering/Resolving]
  - Systemic lupus erythematosus [Recovering/Resolving]
  - Drug ineffective [Recovering/Resolving]
  - Insomnia [Recovering/Resolving]
  - Osteomyelitis [Recovering/Resolving]
